FAERS Safety Report 9454415 (Version 1)
Quarter: 2013Q3

REPORT INFORMATION
  Report Type: Report from Study
  Country: JP (occurrence: JP)
  Receive Date: 20130812
  Receipt Date: 20130812
  Transmission Date: 20140515
  Serious: Yes (Other)
  Sender: FDA-Public Use
  Company Number: JP-VERTEX PHARMACEUTICALS INC-AE-2012-003668

PATIENT
  Age: 56 Year
  Sex: Male

DRUGS (14)
  1. VX-950 (TELAPREVIR) [Suspect]
     Indication: HEPATITIS C
     Dosage: 2250 MG, QD
     Route: 048
     Dates: start: 20120206, end: 20120506
  2. RIBAVIRIN [Suspect]
     Indication: CHRONIC HEPATITIS C
     Dosage: 800 MG, QD
     Route: 048
     Dates: start: 20120206, end: 20120219
  3. RIBAVIRIN [Suspect]
     Dosage: 600 MG, QD
     Route: 048
     Dates: start: 20120220, end: 20120311
  4. RIBAVIRIN [Suspect]
     Dosage: 400 MG, QD
     Route: 048
     Dates: start: 20120312
  5. PEGINTERFERON [Suspect]
     Indication: CHRONIC HEPATITIS C
     Dosage: 1.66 ?G/KG, QW
     Route: 058
     Dates: start: 20120206, end: 20120723
  6. MAGNESIUM OXIDE [Concomitant]
     Dosage: 1 G, QD
     Route: 048
     Dates: start: 20120206, end: 20120220
  7. DIOVAN [Concomitant]
     Dosage: 80 MG, QD
     Route: 048
     Dates: start: 20120213
  8. NAUZELIN [Concomitant]
     Dosage: 10 MG, QD, PRN
     Route: 048
     Dates: start: 20120215, end: 20120401
  9. NEXIUM [Concomitant]
     Dosage: 20 MG, QD
     Route: 048
     Dates: start: 20120305, end: 20120701
  10. PURSENNID      J [Concomitant]
     Dosage: 24 MG, UNK
     Route: 048
  11. PURSENNID      J [Concomitant]
     Dosage: 24 MG, QD, PRN
     Route: 048
     Dates: start: 20120312
  12. PURSENNID      J [Concomitant]
     Dosage: 24 MG, QD
     Route: 048
  13. PANTOSIN [Concomitant]
     Dosage: 2 G, QD
     Route: 048
     Dates: start: 20120206, end: 20120220
  14. TAKEPRON [Concomitant]
     Dosage: 30 MG, QD
     Route: 048
     Dates: start: 20120702

REACTIONS (1)
  - Depression [Not Recovered/Not Resolved]
